FAERS Safety Report 6633609-5 (Version None)
Quarter: 2010Q1

REPORT INFORMATION
  Report Type: 
  Country: None (occurrence: None)
  Receive Date: 20100312
  Receipt Date: 20100310
  Transmission Date: 20100710
  Serious: Yes (Death)
  Sender: FDA-Public Use
  Company Number: US-ALLERGAN-1003211US

PATIENT
  Age: 88 Year
  Sex: Male

DRUGS (1)
  1. BOTOX [Suspect]
     Indication: MUSCLE CONTRACTURE
     Dosage: 300 UNITS, SINGLE
     Route: 030
     Dates: start: 20100206, end: 20100206

REACTIONS (1)
  - DEATH [None]
